FAERS Safety Report 9814331 (Version 3)
Quarter: 2015Q1

REPORT INFORMATION
  Report Type: Spontaneous
  Country: US (occurrence: US)
  Receive Date: 20140113
  Receipt Date: 20150129
  Transmission Date: 20150721
  Serious: Yes (Death, Life-Threatening, Hospitalization, Disabling, Other)
  Sender: FDA-Public Use
  Company Number: US-009507513-1401USA003508

PATIENT
  Sex: Male
  Weight: 97.51 kg

DRUGS (1)
  1. JANUMET [Suspect]
     Active Substance: METFORMIN HYDROCHLORIDE\SITAGLIPTIN PHOSPHATE
     Indication: TYPE 2 DIABETES MELLITUS
     Dosage: 50-1000 MG TWICE DAILY
     Route: 048
     Dates: start: 20081121, end: 20100305

REACTIONS (23)
  - Hypertension [Unknown]
  - Adenocarcinoma pancreas [Fatal]
  - Benign prostatic hyperplasia [Unknown]
  - Transurethral prostatectomy [Unknown]
  - Prostatic specific antigen abnormal [Unknown]
  - Prostatitis [Not Recovered/Not Resolved]
  - Coeliac artery compression syndrome [Unknown]
  - Renal cyst [Unknown]
  - Diabetic gastroparesis [Unknown]
  - Bile duct stent insertion [Unknown]
  - Pancreaticoduodenectomy [Unknown]
  - Metastasis [Fatal]
  - Knee operation [Unknown]
  - Vomiting [Unknown]
  - Hydronephrosis [Unknown]
  - Gallbladder operation [Unknown]
  - Radiotherapy [Unknown]
  - Ankle operation [Unknown]
  - Excoriation [Unknown]
  - Bile duct obstruction [Unknown]
  - Pancreaticoduodenectomy [Unknown]
  - Cholecystectomy [Unknown]
  - Cholelithiasis [Unknown]

NARRATIVE: CASE EVENT DATE: 20091229
